FAERS Safety Report 16121798 (Version 1)
Quarter: 2019Q1

REPORT INFORMATION
  Report Type: Spontaneous
  Country: US (occurrence: US)
  Receive Date: 20190327
  Receipt Date: 20190327
  Transmission Date: 20190418
  Serious: No
  Sender: FDA-Public Use
  Company Number: US-BAUSCH-BL-2019-008017

PATIENT
  Sex: Male

DRUGS (3)
  1. FLUOROURACIL CREAM 5% [Suspect]
     Active Substance: FLUOROURACIL
     Route: 065
     Dates: start: 2019, end: 2019
  2. FLUOROURACIL CREAM 5% [Suspect]
     Active Substance: FLUOROURACIL
     Indication: PRECANCEROUS CELLS PRESENT
     Route: 065
     Dates: start: 2016
  3. FLUOROURACIL CREAM 5% [Suspect]
     Active Substance: FLUOROURACIL
     Route: 065
     Dates: start: 2019

REACTIONS (4)
  - Erythema [Recovered/Resolved]
  - Drug effect decreased [Unknown]
  - Inappropriate schedule of product administration [Unknown]
  - Product quality issue [Unknown]

NARRATIVE: CASE EVENT DATE: 2016
